FAERS Safety Report 6268275-4 (Version None)
Quarter: 2009Q3

REPORT INFORMATION
  Report Type: 
  Country: None (occurrence: None)
  Receive Date: 20090714
  Receipt Date: 20090714
  Transmission Date: 20100115
  Serious: Yes (Life-Threatening)
  Sender: FDA-Public Use
  Company Number: None

PATIENT
  Sex: Female
  Weight: 41.7309 kg

DRUGS (1)
  1. OXYCARBAZEPINE 300 MG [Suspect]
     Indication: EPILEPSY
     Dosage: 3 PILLS 2X PER DAY PO
     Route: 048
     Dates: start: 20081109, end: 20081115

REACTIONS (3)
  - COMPLEX PARTIAL SEIZURES [None]
  - PRODUCT SUBSTITUTION ISSUE [None]
  - STATUS EPILEPTICUS [None]
